FAERS Safety Report 10244253 (Version 1)
Quarter: 2014Q2

REPORT INFORMATION
  Report Type: Spontaneous
  Country: US (occurrence: US)
  Receive Date: 20140618
  Receipt Date: 20140618
  Transmission Date: 20141212
  Serious: Yes (Hospitalization, Other)
  Sender: FDA-Public Use
  Company Number: US-ELI_LILLY_AND_COMPANY-US201406004189

PATIENT
  Age: 61 Year
  Sex: Female

DRUGS (2)
  1. ALIMTA [Suspect]
     Indication: NON-SMALL CELL LUNG CANCER
     Dosage: UNK
     Route: 042
     Dates: start: 20140421, end: 20140421
  2. CARBOPLATIN [Concomitant]
     Dosage: UNK
     Route: 042
     Dates: start: 20140421

REACTIONS (2)
  - Cardiac tamponade [Recovered/Resolved]
  - Off label use [Unknown]
